FAERS Safety Report 14631195 (Version 1)
Quarter: 2018Q1

REPORT INFORMATION
  Report Type: Spontaneous
  Country: JP (occurrence: JP)
  Receive Date: 20180313
  Receipt Date: 20180313
  Transmission Date: 20180509
  Serious: Yes (Hospitalization, Other)
  Sender: FDA-Public Use
  Company Number: JP-BRISTOL-MYERS SQUIBB COMPANY-BMS-2018-022473

PATIENT
  Age: 62 Year
  Weight: 64.1 kg

DRUGS (5)
  1. OPDIVO [Suspect]
     Active Substance: NIVOLUMAB
     Indication: NON-SMALL CELL LUNG CANCER RECURRENT
     Dosage: 210 MG, UNK
     Route: 041
     Dates: start: 20171218, end: 20180215
  2. CANDESARTAN. [Concomitant]
     Active Substance: CANDESARTAN
     Indication: PRODUCT USED FOR UNKNOWN INDICATION
     Route: 065
  3. OPDIVO [Suspect]
     Active Substance: NIVOLUMAB
     Indication: PRODUCT USED FOR UNKNOWN INDICATION
     Dosage: 192 MG, UNK
     Route: 041
     Dates: start: 20180301
  4. CALBLOCK [Concomitant]
     Active Substance: AZELNIDIPINE
     Indication: PRODUCT USED FOR UNKNOWN INDICATION
     Route: 065
  5. CARVEDILOL. [Concomitant]
     Active Substance: CARVEDILOL
     Indication: PRODUCT USED FOR UNKNOWN INDICATION
     Route: 065

REACTIONS (8)
  - Dehydration [Unknown]
  - Muscular weakness [Unknown]
  - Tendon rupture [Recovered/Resolved]
  - Decreased appetite [Unknown]
  - Loss of consciousness [Recovered/Resolved]
  - Fall [Unknown]
  - Disuse syndrome [Unknown]
  - Weight decreased [Unknown]

NARRATIVE: CASE EVENT DATE: 20171226
